FAERS Safety Report 8600079-7 (Version None)
Quarter: 2012Q3

REPORT INFORMATION
  Report Type: 
  Country: None (occurrence: None)
  Receive Date: 20120816
  Receipt Date: 20120808
  Transmission Date: 20120928
  Serious: Yes (Hospitalization, Other)
  Sender: FDA-Public Use
  Company Number: US-B.I. PHARMACEUTICALS,INC./RIDGEFIELD-2012-BP-18790BP

PATIENT
  Age: 60 Year
  Sex: Male
  Weight: 148.32 kg

DRUGS (11)
  1. MOBIC [Suspect]
     Dosage: 15 MG
     Route: 048
  2. MEDROL [Concomitant]
  3. XARELTO [Suspect]
     Indication: ATRIAL FIBRILLATION
  4. ATENOLOL [Concomitant]
     Dosage: 100 MG
  5. XARELTO [Suspect]
     Indication: CEREBROVASCULAR ACCIDENT PROPHYLAXIS
     Dosage: 20 MG
     Route: 048
     Dates: start: 20120427
  6. SINGULAIR [Concomitant]
     Dosage: 10 MG
  7. TRAMADOL HCL [Concomitant]
     Dosage: 50 MG
  8. FLEXERIL [Concomitant]
     Dosage: 30 MG
     Route: 048
  9. FLONASE [Concomitant]
     Dosage: 50 MCG
  10. VENTOLIN [Concomitant]
     Dosage: 10 MG
     Route: 055
  11. TESTOSTERONE [Concomitant]
     Dosage: 6.6667 MG

REACTIONS (1)
  - UPPER GASTROINTESTINAL HAEMORRHAGE [None]
